FAERS Safety Report 7570636-8 (Version None)
Quarter: 2011Q2

REPORT INFORMATION
  Report Type: 
  Country: None (occurrence: None)
  Receive Date: 20110622
  Receipt Date: 20110622
  Transmission Date: 20111010
  Serious: No
  Sender: FDA-Public Use
  Company Number: None

PATIENT

DRUGS (2)
  1. SAGE ORAL CARE KIT [Suspect]
     Indication: PNEUMONIA
     Dates: start: 20110605
  2. SAGE ORAL CARE KIT [Suspect]
     Indication: PROPHYLAXIS
     Dates: start: 20110605

REACTIONS (1)
  - DEVICE BREAKAGE [None]
